FAERS Safety Report 9075018 (Version 3)
Quarter: 2013Q3

REPORT INFORMATION
  Report Type: Report from Study
  Country: US (occurrence: US)
  Receive Date: 20130129
  Receipt Date: 20130708
  Transmission Date: 20140515
  Serious: Yes (Hospitalization)
  Sender: FDA-Public Use
  Company Number: US-ACTELION-A-US2013-77115

PATIENT
  Age: 48 Year
  Sex: Female

DRUGS (5)
  1. VELETRI [Suspect]
     Indication: PULMONARY ARTERIAL HYPERTENSION
     Dosage: 40 NG/KG, UNK
     Route: 042
     Dates: start: 20100719
  2. VELETRI [Suspect]
     Dosage: 38 NG/KG, PER MIN
     Route: 042
     Dates: start: 20100719
  3. TRACLEER [Suspect]
     Indication: PULMONARY ARTERIAL HYPERTENSION
     Dosage: UNK
     Route: 048
  4. COUMADIN [Concomitant]
  5. SILDENAFIL [Concomitant]

REACTIONS (9)
  - Drug hypersensitivity [Unknown]
  - Pneumonia [Recovering/Resolving]
  - Increased upper airway secretion [Recovering/Resolving]
  - Cough [Recovering/Resolving]
  - Dyspnoea [Recovering/Resolving]
  - Oxygen saturation decreased [Recovering/Resolving]
  - Influenza [Recovering/Resolving]
  - Dehydration [Recovered/Resolved]
  - Nasopharyngitis [Recovering/Resolving]
